FAERS Safety Report 9186411 (Version 5)
Quarter: 2014Q2

REPORT INFORMATION
  Report Type: Report from Study
  Country: DE (occurrence: DE)
  Receive Date: 20130325
  Receipt Date: 20140602
  Transmission Date: 20141212
  Serious: Yes (Hospitalization)
  Sender: FDA-Public Use
  Company Number: DE-ROCHE-1194276

PATIENT
  Age: 73 Year
  Sex: Female
  Weight: 55.2 kg

DRUGS (7)
  1. TRASTUZUMAB [Suspect]
     Indication: HER-2 POSITIVE BREAST CANCER
     Dosage: LOADING DOSE
     Route: 042
     Dates: start: 20130212
  2. TRASTUZUMAB [Suspect]
     Dosage: MAINTENACE DOSE, DATE OF LAST DOSE PRIOR TO SAE: 05/MAR/2013
     Route: 042
     Dates: start: 20130305
  3. DOCETAXEL [Suspect]
     Indication: HER-2 POSITIVE BREAST CANCER
     Route: 042
     Dates: start: 20130212
  4. DOCETAXEL [Suspect]
     Dosage: DATE OF LAST DOSE PRIOR TO SAE: 05/MAR/2013
     Route: 042
  5. CARBOPLATIN [Suspect]
     Indication: HER-2 POSITIVE BREAST CANCER
     Route: 065
  6. PERTUZUMAB [Suspect]
     Indication: HER-2 POSITIVE BREAST CANCER
     Dosage: LOADING DOSE
     Route: 042
     Dates: start: 20130212
  7. PERTUZUMAB [Suspect]
     Dosage: MAINTENANCE DOSE, DATE OF LAST DOSE PRIOR TO SAE: 05/MAR/2013
     Route: 042
     Dates: start: 20130305

REACTIONS (2)
  - Palmar-plantar erythrodysaesthesia syndrome [Recovered/Resolved]
  - Fatigue [Recovered/Resolved]
